FAERS Safety Report 4355229-8 (Version None)
Quarter: 2004Q2

REPORT INFORMATION
  Report Type: 
  Country: None (occurrence: None)
  Receive Date: 20040504
  Receipt Date: 20040422
  Transmission Date: 20050107
  Serious: Yes (Life-Threatening)
  Sender: FDA-Public Use
  Company Number: 2004SE01142

PATIENT
  Age: 58 Year
  Sex: Female

DRUGS (2)
  1. SEROQUEL [Suspect]
     Indication: SCHIZOPHRENIA
     Dosage: 400 MG DAILY PO
     Route: 048
     Dates: start: 20031001, end: 20040201
  2. FLUPHENAZINE [Concomitant]

REACTIONS (2)
  - CEREBRAL ATROPHY [None]
  - STATUS EPILEPTICUS [None]
